FAERS Safety Report 4741910-5 (Version None)
Quarter: 2005Q3

REPORT INFORMATION
  Report Type: 
  Country: None (occurrence: None)
  Receive Date: 20050801
  Receipt Date: 20050616
  Transmission Date: 20060218
  Serious: No
  Sender: FDA-Public Use
  Company Number: 2005PV000056

PATIENT
  Age: 72 Year
  Sex: Male
  Weight: 96.1626 kg

DRUGS (5)
  1. BYETTA [Suspect]
     Indication: DIABETES MELLITUS NON-INSULIN-DEPENDENT
     Dosage: 5 UG;BID;SC
     Route: 058
     Dates: start: 20050615
  2. AVANDIA [Concomitant]
  3. AMARYL [Concomitant]
  4. IMDUR [Concomitant]
  5. ECOTRIN [Concomitant]

REACTIONS (3)
  - DECREASED APPETITE [None]
  - INJECTION SITE HAEMORRHAGE [None]
  - NAUSEA [None]
